FAERS Safety Report 6038897-4 (Version None)
Quarter: 2009Q1

REPORT INFORMATION
  Report Type: 
  Country: None (occurrence: None)
  Receive Date: 20090114
  Receipt Date: 20090114
  Transmission Date: 20090719
  Serious: Yes (Other)
  Sender: FDA-Public Use
  Company Number: None

PATIENT
  Age: 24 Year
  Sex: Male
  Weight: 68.0396 kg

DRUGS (1)
  1. PRO HEALTH RINSE PROCTOR AND GAMBLE CREST. [Suspect]
     Indication: DENTAL DISORDER PROPHYLAXIS
     Dosage: 4 TEASPOONS 2 TIMES DAILY PO
     Route: 048
     Dates: start: 20081201, end: 20081214

REACTIONS (3)
  - DYSGEUSIA [None]
  - FOREIGN BODY TRAUMA [None]
  - TOOTH DISCOLOURATION [None]
